FAERS Safety Report 7528213-0 (Version None)
Quarter: 2011Q2

REPORT INFORMATION
  Report Type: 
  Country: None (occurrence: None)
  Receive Date: 20110607
  Receipt Date: 20101019
  Transmission Date: 20111010
  Serious: No
  Sender: FDA-Public Use
  Company Number: US-ASTRAZENECA-2010SE49511

PATIENT
  Sex: Male

DRUGS (2)
  1. NEXIUM [Suspect]
     Dosage: BID
     Route: 048
  2. PRILOSEC [Suspect]
     Route: 048

REACTIONS (3)
  - WRONG DRUG ADMINISTERED [None]
  - DRUG DOSE OMISSION [None]
  - DRUG EFFECT DECREASED [None]
